FAERS Safety Report 5925989-0 (Version None)
Quarter: 2008Q4

REPORT INFORMATION
  Report Type: 
  Country: None (occurrence: None)
  Receive Date: 20081021
  Receipt Date: 20081015
  Transmission Date: 20090506
  Serious: Yes (Death)
  Sender: FDA-Public Use
  Company Number: IT-TEVA-178313ISR

PATIENT
  Age: 29 Year
  Sex: Male

DRUGS (3)
  1. BLEOMYCIN SULFATE [Suspect]
     Indication: TESTIS CANCER
  2. CISPLATIN [Suspect]
     Indication: TESTIS CANCER
  3. ETOPOSIDE [Suspect]
     Indication: TESTIS CANCER

REACTIONS (1)
  - BRAIN NEOPLASM [None]
